FAERS Safety Report 9953785 (Version 2)
Quarter: 2014Q1

REPORT INFORMATION
  Report Type: Spontaneous
  Country: US (occurrence: US)
  Receive Date: 20140304
  Receipt Date: 20140304
  Transmission Date: 20141002
  Serious: Yes (Hospitalization)
  Sender: FDA-Public Use
  Company Number: US-ABBVIE-14P-163-1193846-00

PATIENT
  Age: 58 Year
  Sex: Female
  Weight: 77.6 kg

DRUGS (27)
  1. RIBAVIRIN [Suspect]
     Indication: PRODUCT USED FOR UNKNOWN INDICATION
     Route: 048
     Dates: start: 20131021, end: 20131107
  2. RIBAVIRIN [Suspect]
     Route: 048
     Dates: start: 20131108, end: 20140110
  3. SOF/LDV (SOFOSBUVIR/LEDIPASVIR) [Suspect]
     Indication: PRODUCT USED FOR UNKNOWN INDICATION
     Route: 048
     Dates: start: 20131021, end: 20140112
  4. RANITIDINE [Concomitant]
     Indication: GASTROOESOPHAGEAL REFLUX DISEASE
     Route: 048
     Dates: start: 20131014
  5. DOCUSATE SODIUM [Concomitant]
     Indication: CONSTIPATION
     Route: 048
     Dates: start: 2008
  6. DOCUSATE SODIUM [Concomitant]
     Indication: PROPHYLAXIS
  7. NIFEDIPINE [Concomitant]
     Indication: HYPERTENSION
     Route: 048
     Dates: start: 2008, end: 20131211
  8. LISINOPRIL [Concomitant]
     Indication: HYPERTENSION
     Route: 048
     Dates: start: 2013, end: 20131211
  9. CLONIDINE [Concomitant]
     Indication: HYPERTENSION
     Route: 048
     Dates: start: 20131126
  10. PLAVIX [Concomitant]
     Indication: CEREBROVASCULAR ACCIDENT PROPHYLAXIS
     Route: 048
     Dates: start: 20131211
  11. FLUOXETINE [Concomitant]
     Indication: CEREBROVASCULAR ACCIDENT PROPHYLAXIS
     Route: 048
     Dates: start: 20131211
  12. ATORVASTATIN [Concomitant]
     Indication: CEREBROVASCULAR ACCIDENT PROPHYLAXIS
     Route: 048
     Dates: start: 20131211
  13. LISINOPRIL/HCTZ [Concomitant]
     Indication: HYPERTENSION
     Dosage: 25/25MG
     Route: 048
     Dates: start: 20131211, end: 20140110
  14. OXYCODONE [Concomitant]
     Indication: PAIN
     Route: 048
     Dates: start: 2012
  15. ENTECAVIR [Concomitant]
     Indication: ANTIVIRAL PROPHYLAXIS
     Route: 048
     Dates: start: 201211
  16. VALTREX [Concomitant]
     Indication: HERPES SIMPLEX
     Route: 048
     Dates: start: 2010
  17. METOPROLOL [Concomitant]
     Indication: HYPERTENSION
     Route: 048
     Dates: start: 2008, end: 20131211
  18. LANTUS [Concomitant]
     Indication: TYPE 2 DIABETES MELLITUS
     Route: 058
     Dates: start: 2003
  19. NOVOLOG [Concomitant]
     Indication: DIABETES MELLITUS
     Route: 058
     Dates: start: 2003
  20. SYNTHYROID [Concomitant]
     Indication: HYPOTHYROIDISM
     Route: 048
     Dates: start: 2003
  21. BACTRIM [Concomitant]
     Indication: PROPHYLAXIS AGAINST TRANSPLANT REJECTION
     Route: 048
     Dates: start: 2012
  22. PREDNISONE [Concomitant]
     Indication: IMMUNOSUPPRESSION
     Route: 048
     Dates: start: 201306
  23. TACROLIMUS [Concomitant]
     Indication: IMMUNOSUPPRESSION
     Route: 048
     Dates: start: 201211, end: 20131211
  24. TACROLIMUS [Concomitant]
     Route: 048
     Dates: start: 20131212, end: 20140110
  25. IPRATROPIUM BROMIDE [Concomitant]
     Indication: DYSPNOEA
     Dosage: RESPIRATORY
     Dates: start: 2011
  26. NORMAL SALINE [Concomitant]
     Indication: RENAL FAILURE ACUTE
     Route: 040
     Dates: start: 20140110, end: 20140110
  27. RED BLOOD CELLS, CONCENTRATED [Concomitant]
     Indication: ANAEMIA
     Route: 042
     Dates: start: 20140110, end: 20140110

REACTIONS (2)
  - Renal failure acute [Recovered/Resolved]
  - Anaemia [Unknown]
